FAERS Safety Report 5944466-4 (Version None)
Quarter: 2008Q4

REPORT INFORMATION
  Report Type: 
  Country: None (occurrence: None)
  Receive Date: 20081107
  Receipt Date: 20081029
  Transmission Date: 20090506
  Serious: Yes (Other)
  Sender: FDA-Public Use
  Company Number: CA-JNJFOC-20081100374

PATIENT
  Sex: Female

DRUGS (1)
  1. EXTRA STRENGTH TYLENOL FLU DAYTIME [Suspect]
     Indication: INFLUENZA
     Route: 048

REACTIONS (4)
  - DIZZINESS [None]
  - INJURY [None]
  - ROAD TRAFFIC ACCIDENT [None]
  - SOMNOLENCE [None]
